FAERS Safety Report 5410107-8 (Version None)
Quarter: 2007Q3

REPORT INFORMATION
  Report Type: 
  Country: None (occurrence: None)
  Receive Date: 20070713
  Receipt Date: 20070402
  Transmission Date: 20080115
  Serious: No
  Sender: FDA-Public Use
  Company Number: 2007SP001180

PATIENT
  Age: 85 Year
  Sex: Male
  Weight: 78.0187 kg

DRUGS (10)
  1. LUNESTA [Suspect]
     Indication: SLEEP DISORDER
     Dosage: 1 MG;HS;ORAL, 2 MG;HS;ORAL, 3 MG;HS;ORAL
     Route: 048
     Dates: start: 20070301, end: 20070301
  2. LUNESTA [Suspect]
     Indication: SLEEP DISORDER
     Dosage: 1 MG;HS;ORAL, 2 MG;HS;ORAL, 3 MG;HS;ORAL
     Route: 048
     Dates: start: 20070301, end: 20070301
  3. LUNESTA [Suspect]
     Indication: SLEEP DISORDER
     Dosage: 1 MG;HS;ORAL, 2 MG;HS;ORAL, 3 MG;HS;ORAL
     Route: 048
     Dates: start: 20070301
  4. WARFARIN SODIUM [Concomitant]
  5. TOPROL-XL [Concomitant]
  6. POTASSIUM CHLORIDE [Concomitant]
  7. VITAMIN A [Concomitant]
  8. ASCORBIC ACID [Concomitant]
  9. DESLORATADINE [Concomitant]
  10. DALMANE [Concomitant]

REACTIONS (3)
  - DRUG INEFFECTIVE [None]
  - INSOMNIA [None]
  - TINNITUS [None]
